FAERS Safety Report 14228823 (Version 1)
Quarter: 2017Q4

REPORT INFORMATION
  Report Type: Spontaneous
  Country: TW (occurrence: TW)
  Receive Date: 20171128
  Receipt Date: 20171128
  Transmission Date: 20180321
  Serious: Yes (Congenital Anomaly, Other)
  Sender: FDA-Public Use
  Company Number: TW-ROCHE-567728

PATIENT
  Sex: Female

DRUGS (3)
  1. MYCOPHENOLATE MOFETIL. [Suspect]
     Active Substance: MYCOPHENOLATE MOFETIL
     Indication: SYSTEMIC LUPUS ERYTHEMATOSUS
     Route: 064
  2. HYDROXYCHLOROQUINE [Concomitant]
     Active Substance: HYDROXYCHLOROQUINE
     Route: 065
  3. PREDNISOLONE. [Concomitant]
     Active Substance: PREDNISOLONE
     Route: 065

REACTIONS (8)
  - External auditory canal atresia [Unknown]
  - Polyhydramnios [Unknown]
  - Congenital nose malformation [Unknown]
  - Microtia [Unknown]
  - Micrognathia [Unknown]
  - Hypertelorism of orbit [Unknown]
  - Abortion induced [Unknown]
  - Maternal drugs affecting foetus [Unknown]
